FAERS Safety Report 4445660-4 (Version None)
Quarter: 2004Q3

REPORT INFORMATION
  Report Type: 
  Country: None (occurrence: None)
  Receive Date: 20040910
  Receipt Date: 20040510
  Transmission Date: 20050211
  Serious: Yes (Death)
  Sender: FDA-Public Use
  Company Number: JP-BRISTOL-MYERS SQUIBB COMPANY-12583282

PATIENT
  Age: 61 Year
  Sex: Female

DRUGS (4)
  1. PARAPLATIN [Suspect]
     Indication: LYMPHOMA
     Route: 042
     Dates: start: 20010322, end: 20010325
  2. VEPESID [Suspect]
     Indication: LYMPHOMA
     Route: 042
     Dates: start: 20010323, end: 20010325
  3. CYCLOPHOSPHAMIDE [Suspect]
     Route: 042
     Dates: start: 20010326, end: 20010327
  4. RANIMUSTINE [Suspect]
     Route: 042
     Dates: start: 20010321, end: 20010326

REACTIONS (2)
  - ACUTE MYELOID LEUKAEMIA [None]
  - TREATMENT RELATED SECONDARY MALIGNANCY [None]
